FAERS Safety Report 7223379-4 (Version None)
Quarter: 2011Q1

REPORT INFORMATION
  Report Type: 
  Country: None (occurrence: None)
  Receive Date: 20110112
  Receipt Date: 20100601
  Transmission Date: 20110831
  Serious: No
  Sender: FDA-Public Use
  Company Number: US-ALLERGAN-1007087US

PATIENT
  Sex: Female

DRUGS (6)
  1. MAGNESIUM [Concomitant]
  2. CALCIUM [Concomitant]
  3. MULTI-VITAMIN [Concomitant]
  4. RESTASIS [Suspect]
     Indication: DRY EYE
     Dosage: UNK
     Route: 047
     Dates: start: 20100527, end: 20100528
  5. HYZAAR [Concomitant]
  6. FISH OIL [Concomitant]

REACTIONS (2)
  - THROAT IRRITATION [None]
  - DYSPEPSIA [None]
